FAERS Safety Report 4952013-9 (Version None)
Quarter: 2006Q1

REPORT INFORMATION
  Report Type: 
  Country: None (occurrence: None)
  Receive Date: 20060322
  Receipt Date: 20060322
  Transmission Date: 20060701
  Serious: No
  Sender: FDA-Public Use
  Company Number: None

PATIENT
  Sex: Male

DRUGS (1)
  1. RISPERDAL [Suspect]
     Indication: AGITATION
     Dosage: 1 MG Q 2 H PO
     Route: 048
     Dates: start: 20060302, end: 20060306

REACTIONS (1)
  - AKATHISIA [None]
